FAERS Safety Report 16107060 (Version 1)
Quarter: 2019Q1

REPORT INFORMATION
  Report Type: Spontaneous
  Country: CA (occurrence: US)
  Receive Date: 20190322
  Receipt Date: 20190322
  Transmission Date: 20190418
  Serious: Yes (Other)
  Sender: FDA-Public Use
  Company Number: CA-BAYER-2019-056053

PATIENT
  Age: 44 Year
  Sex: Female
  Weight: 52 kg

DRUGS (1)
  1. ALKA-SELTZER GOLD [Suspect]
     Active Substance: ANHYDROUS CITRIC ACID\POTASSIUM BICARBONATE\SODIUM BICARBONATE
     Route: 048
     Dates: start: 201901

REACTIONS (5)
  - Abdominal discomfort [None]
  - Babesiosis [None]
  - Malaria [None]
  - Feeling hot [None]
  - Hypersensitivity [Unknown]

NARRATIVE: CASE EVENT DATE: 201901
